FAERS Safety Report 4324197-7 (Version None)
Quarter: 2004Q1

REPORT INFORMATION
  Report Type: 
  Country: None (occurrence: None)
  Receive Date: 20040323
  Receipt Date: 20040309
  Transmission Date: 20041129
  Serious: Yes (Hospitalization, Other)
  Sender: FDA-Public Use
  Company Number: 2004016566

PATIENT
  Age: 77 Year
  Sex: Male

DRUGS (11)
  1. GEODON [Suspect]
     Indication: AGITATION
     Dosage: 80 MG (BID), ORAL
     Route: 048
     Dates: start: 20040211
  2. GEODON [Suspect]
     Indication: DEMENTIA
     Dosage: 80 MG (BID), ORAL
     Route: 048
     Dates: start: 20040211
  3. GEODON [Suspect]
     Indication: PSYCHOTIC DISORDER
     Dosage: 80 MG (BID), ORAL
     Route: 048
     Dates: start: 20040211
  4. PREDNISONE [Suspect]
     Indication: CHRONIC OBSTRUCTIVE AIRWAYS DISEASE
     Dosage: 5 MG (DAILY)
  5. MIRTAZAPINE [Concomitant]
  6. DOCUSATE [Concomitant]
  7. ACETAMINOPHEN [Concomitant]
  8. LANSOPRAZOLE [Concomitant]
  9. LACTULOSE [Concomitant]
  10. IPRATROPIUM BROMIDE [Concomitant]
  11. ALBUTEROL SULFATE [Concomitant]

REACTIONS (3)
  - ANAEMIA [None]
  - GASTROINTESTINAL HAEMORRHAGE [None]
  - WEIGHT DECREASED [None]
